FAERS Safety Report 7937932-3 (Version None)
Quarter: 2011Q4

REPORT INFORMATION
  Report Type: 
  Country: None (occurrence: None)
  Receive Date: 20111123
  Receipt Date: 20111121
  Transmission Date: 20120403
  Serious: Yes (Other)
  Sender: FDA-Public Use
  Company Number: JP-PFIZER INC-2011283835

PATIENT

DRUGS (3)
  1. GARENOXACIN MESILATE [Suspect]
  2. DIFLUCAN [Suspect]
     Route: 048
  3. AZACITIDINE [Suspect]

REACTIONS (1)
  - INTERSTITIAL LUNG DISEASE [None]
